FAERS Safety Report 20892437 (Version 1)
Quarter: 2022Q2

REPORT INFORMATION
  Report Type: Report from Study
  Country: CA (occurrence: CA)
  Receive Date: 20220531
  Receipt Date: 20220531
  Transmission Date: 20220721
  Serious: Yes (Death, Other)
  Sender: FDA-Public Use
  Company Number: CA-BRISTOL-MYERS SQUIBB COMPANY-2022-048524

PATIENT
  Age: 40 Year
  Sex: Female

DRUGS (5)
  1. OPDIVO [Suspect]
     Active Substance: NIVOLUMAB
     Indication: Cervix carcinoma
     Route: 042
     Dates: start: 20211119
  2. YERVOY [Suspect]
     Active Substance: IPILIMUMAB
     Indication: Cervix carcinoma
     Route: 042
     Dates: start: 20211119
  3. HYDROMORPHONE [Concomitant]
     Active Substance: HYDROMORPHONE
  4. DALTEPARIN [Concomitant]
     Active Substance: DALTEPARIN
  5. AMITRIPTYLINE [Concomitant]
     Active Substance: AMITRIPTYLINE

REACTIONS (2)
  - Death [Fatal]
  - Intentional product use issue [Unknown]

NARRATIVE: CASE EVENT DATE: 20220403
